FAERS Safety Report 7644247-X (Version None)
Quarter: 2011Q3

REPORT INFORMATION
  Report Type: 
  Country: None (occurrence: None)
  Receive Date: 20110729
  Receipt Date: 20110718
  Transmission Date: 20111222
  Serious: Yes (Other)
  Sender: FDA-Public Use
  Company Number: PHHY2011AR65036

PATIENT
  Sex: Male

DRUGS (1)
  1. CLOZAPINE [Suspect]

REACTIONS (4)
  - OBESITY [None]
  - LEUKOCYTOSIS [None]
  - NEUTROPHILIA [None]
  - URINARY INCONTINENCE [None]
